FAERS Safety Report 7252317-3 (Version None)
Quarter: 2011Q1

REPORT INFORMATION
  Report Type: 
  Country: None (occurrence: None)
  Receive Date: 20110129
  Receipt Date: 20100104
  Transmission Date: 20110831
  Serious: No
  Sender: FDA-Public Use
  Company Number: US-ABBOTT-08P-163-0460016-00

PATIENT
  Sex: Female

DRUGS (6)
  1. HUMIRA [Suspect]
     Dates: start: 20090301
  2. HUMIRA [Suspect]
     Indication: CROHN'S DISEASE
     Route: 058
     Dates: start: 20080305, end: 20090101
  3. BUSPAR [Concomitant]
     Indication: PRODUCT USED FOR UNKNOWN INDICATION
  4. ATENOLOL [Concomitant]
     Indication: PRODUCT USED FOR UNKNOWN INDICATION
  5. HUMIRA [Suspect]
  6. CARDIZEM [Concomitant]
     Indication: PRODUCT USED FOR UNKNOWN INDICATION

REACTIONS (14)
  - SOMNOLENCE [None]
  - ABDOMINAL DISTENSION [None]
  - BRONCHITIS CHRONIC [None]
  - MALAISE [None]
  - DRUG INEFFECTIVE [None]
  - OEDEMA PERIPHERAL [None]
  - SINUSITIS [None]
  - TACHYPNOEA [None]
  - GAIT DISTURBANCE [None]
  - WEIGHT ABNORMAL [None]
  - DIZZINESS [None]
  - ABDOMINAL PAIN UPPER [None]
  - WEIGHT INCREASED [None]
  - CUSHINGOID [None]
